FAERS Safety Report 4526877-7 (Version None)
Quarter: 2004Q4

REPORT INFORMATION
  Report Type: 
  Country: None (occurrence: None)
  Receive Date: 20041105
  Receipt Date: 20040914
  Transmission Date: 20050328
  Serious: No
  Sender: FDA-Public Use
  Company Number: 2004USFACT00022

PATIENT
  Age: 63 Year
  Sex: Female

DRUGS (1)
  1. FACTIVE [Suspect]
     Indication: RESPIRATORY TRACT INFECTION BACTERIAL
     Dosage: 320.00 MG QD, ORAL
     Route: 048
     Dates: start: 20040101, end: 20040901

REACTIONS (1)
  - RASH GENERALISED [None]
